FAERS Safety Report 26115577 (Version 2)
Quarter: 2025Q4

REPORT INFORMATION
  Report Type: Spontaneous
  Country: CH (occurrence: CH)
  Receive Date: 20251203
  Receipt Date: 20251230
  Transmission Date: 20260117
  Serious: Yes (Life-Threatening, Other)
  Sender: ASTELLAS
  Company Number: CH-ASTELLAS-2025-AER-066851

PATIENT
  Sex: Male
  Weight: 1.3 kg

DRUGS (1)
  1. TACROLIMUS [Suspect]
     Active Substance: TACROLIMUS
     Indication: Immunomodulatory therapy
     Dosage: TARGET THROUGH LEVELS OF 6^-8 NG/ML)
     Route: 064
     Dates: start: 2020

REACTIONS (5)
  - Premature baby [Unknown]
  - Low birth weight baby [Unknown]
  - Renal impairment [Recovered/Resolved]
  - Foetal growth restriction [Unknown]
  - Foetal exposure during pregnancy [Unknown]

NARRATIVE: CASE EVENT DATE: 20220101
